FAERS Safety Report 7041643-9 (Version None)
Quarter: 2010Q4

REPORT INFORMATION
  Report Type: 
  Country: None (occurrence: None)
  Receive Date: 20101013
  Receipt Date: 20100222
  Transmission Date: 20110411
  Serious: No
  Sender: FDA-Public Use
  Company Number: US-ASTRAZENECA-2010SE07696

PATIENT
  Age: 68 Year
  Sex: Female
  Weight: 86.2 kg

DRUGS (7)
  1. SYMBICORT [Suspect]
     Indication: CHRONIC OBSTRUCTIVE PULMONARY DISEASE
     Dosage: 80 UG TWO PUFFS
     Route: 055
     Dates: start: 20090801, end: 20100218
  2. SYMBICORT [Suspect]
     Dosage: 320 UG
     Route: 055
     Dates: start: 20100219
  3. FLONASE [Concomitant]
  4. AVELOX [Concomitant]
  5. CARDIZEM [Concomitant]
  6. LISINOPRIL AND HYDROCHLOROTHIAZIDE [Concomitant]
  7. ALBUTEROL [Concomitant]

REACTIONS (4)
  - COUGH [None]
  - DYSPNOEA [None]
  - PULMONARY FUNCTION TEST ABNORMAL [None]
  - WHEEZING [None]
